FAERS Safety Report 16902269 (Version 1)
Quarter: 2019Q4

REPORT INFORMATION
  Report Type: Spontaneous
  Country: JP (occurrence: JP)
  Receive Date: 20191010
  Receipt Date: 20191010
  Transmission Date: 20200122
  Serious: Yes (Hospitalization, Other)
  Sender: FDA-Public Use
  Company Number: JP-ROCHE-2430631

PATIENT
  Age: 29 Year
  Sex: Female
  Weight: 62 kg

DRUGS (6)
  1. THEOPHYLLINE [Concomitant]
     Active Substance: THEOPHYLLINE ANHYDROUS
     Indication: ASTHMA
     Dosage: UNK
     Route: 065
  2. TIOTROPIUM BROMIDE MONOHYDRATE [Concomitant]
     Active Substance: TIOTROPIUM BROMIDE MONOHYDRATE
     Indication: ASTHMA
     Dosage: UNK
     Route: 065
  3. OMALIZUMAB. [Suspect]
     Active Substance: OMALIZUMAB
     Indication: ASTHMA
     Dosage: 6 DOSES
     Route: 065
  4. FLUTICASONE PROPIONATE. [Concomitant]
     Active Substance: FLUTICASONE PROPIONATE
     Indication: ASTHMA
     Dosage: UNK
     Route: 065
  5. PREDNISOLONE. [Concomitant]
     Active Substance: PREDNISOLONE
     Indication: ASTHMA
     Dosage: 20 MG, UNK
     Route: 048
  6. PREDNISOLONE. [Concomitant]
     Active Substance: PREDNISOLONE
     Dosage: 12.5 MG, UNK
     Route: 048

REACTIONS (16)
  - Asthma [Unknown]
  - Osteonecrosis [Unknown]
  - Glaucoma [Unknown]
  - Hypertension [Unknown]
  - Disease progression [Unknown]
  - Chest pain [Unknown]
  - Secondary hypothyroidism [Unknown]
  - Muscular weakness [Unknown]
  - Dyspnoea [Unknown]
  - Adrenal insufficiency [Unknown]
  - Hyperlipidaemia [Unknown]
  - Myopathy [Unknown]
  - Oedema [Unknown]
  - Herpes zoster [Unknown]
  - Therapeutic response decreased [Unknown]
  - Obesity [Unknown]
